FAERS Safety Report 6960578-0 (Version None)
Quarter: 2010Q3

REPORT INFORMATION
  Report Type: 
  Country: None (occurrence: None)
  Receive Date: 20100901
  Receipt Date: 20100823
  Transmission Date: 20110219
  Serious: Yes (Other)
  Sender: FDA-Public Use
  Company Number: BR-PFIZER INC-2010105758

PATIENT
  Age: 33 Year
  Sex: Female
  Weight: 82 kg

DRUGS (2)
  1. DEPO-PROVERA [Suspect]
     Indication: CONTRACEPTION
     Dosage: 150 MG, EVERY 3 MONTHS
     Route: 030
     Dates: start: 20050101
  2. DEPO-PROVERA [Suspect]
     Indication: VAGINAL HAEMORRHAGE

REACTIONS (4)
  - AMENORRHOEA [None]
  - MENORRHAGIA [None]
  - UTERINE LEIOMYOMA [None]
  - WEIGHT INCREASED [None]
